FAERS Safety Report 9344800 (Version 1)
Quarter: 2013Q2

REPORT INFORMATION
  Report Type: Spontaneous
  Country: FR (occurrence: FR)
  Receive Date: 20130612
  Receipt Date: 20130612
  Transmission Date: 20140414
  Serious: Yes (Hospitalization)
  Sender: FDA-Public Use
  Company Number: FR-BRISTOL-MYERS SQUIBB COMPANY-18977280

PATIENT
  Age: 59 Year
  Sex: Male

DRUGS (9)
  1. VIDEX [Suspect]
     Indication: HIV INFECTION
     Dosage: HARD CAPSULE
     Dates: start: 200212, end: 20050616
  2. VIREAD [Suspect]
     Indication: HIV INFECTION
     Route: 048
     Dates: start: 200212, end: 20050616
  3. VIRACEPT [Suspect]
     Indication: HIV INFECTION
     Dates: start: 200212
  4. STAGID [Concomitant]
     Dosage: 1DF: 700 UNITS NOS
  5. OROCAL D3 [Concomitant]
  6. VIRACEPT [Concomitant]
     Dosage: 1DF:250 UNITS NOS:?5 IN THE MORNING AND 5 IN THE EVENING
     Dates: start: 200212
  7. CRESTOR [Concomitant]
     Dosage: 1DF: 10 UNITS NOS
  8. IMOVANE [Concomitant]
     Dosage: 1DF:HALF TABLET AT BEDTIME
  9. MOTILIUM [Concomitant]

REACTIONS (1)
  - Renal tubular necrosis [Recovered/Resolved]
